FAERS Safety Report 7270196-5 (Version None)
Quarter: 2011Q1

REPORT INFORMATION
  Report Type: 
  Country: None (occurrence: None)
  Receive Date: 20110202
  Receipt Date: 20110120
  Transmission Date: 20110831
  Serious: Yes (Hospitalization)
  Sender: FDA-Public Use
  Company Number: US-ELI_LILLY_AND_COMPANY-US201101005734

PATIENT
  Sex: Male
  Weight: 77.098 kg

DRUGS (1)
  1. ZYPREXA [Suspect]
     Dosage: 50 MG, UNK

REACTIONS (3)
  - OVERDOSE [None]
  - HOSPITALISATION [None]
  - WEIGHT INCREASED [None]
